FAERS Safety Report 11213536 (Version 3)
Quarter: 2015Q3

REPORT INFORMATION
  Report Type: Spontaneous
  Country: BR (occurrence: BR)
  Receive Date: 20150623
  Receipt Date: 20150706
  Transmission Date: 20151125
  Serious: Yes (Other)
  Sender: FDA-Public Use
  Company Number: PHHY2015BR075163

PATIENT
  Age: 84 Year
  Sex: Female
  Weight: 61 kg

DRUGS (2)
  1. CODATEN [Suspect]
     Active Substance: CODEINE PHOSPHATE\DICLOFENAC SODIUM
     Dosage: 0.5 DF, QD
     Route: 048
     Dates: start: 20150618
  2. CODATEN [Suspect]
     Active Substance: CODEINE PHOSPHATE\DICLOFENAC SODIUM
     Indication: SCIATICA
     Dosage: 2 DF, QD
     Route: 048
     Dates: start: 20150613

REACTIONS (3)
  - Wrong technique in product usage process [Unknown]
  - Somnolence [Recovering/Resolving]
  - Blood pressure increased [Recovering/Resolving]

NARRATIVE: CASE EVENT DATE: 20150618
